FAERS Safety Report 8586497 (Version 2)
Quarter: 2015Q3

REPORT INFORMATION
  Report Type: Spontaneous
  Country: US (occurrence: US)
  Receive Date: 20120530
  Receipt Date: 20150826
  Transmission Date: 20151125
  Serious: Yes (Hospitalization, Congenital Anomaly, Other)
  Sender: FDA-Public Use
  Company Number: US-GLAXOSMITHKLINE-A0979144A

PATIENT
  Age: 0 Day
  Sex: Male

DRUGS (3)
  1. PAXIL [Suspect]
     Active Substance: PAROXETINE HYDROCHLORIDE
     Indication: DEPRESSION
     Dosage: 20 MG, QD
     Route: 064
     Dates: start: 2000, end: 2008
  2. PAXIL [Suspect]
     Active Substance: PAROXETINE HYDROCHLORIDE
     Indication: ANXIETY
  3. PAROXETINE HCL [Suspect]
     Active Substance: PAROXETINE HYDROCHLORIDE
     Indication: PRODUCT USED FOR UNKNOWN INDICATION
     Dosage: 20 MG, U
     Route: 064
     Dates: start: 20090926, end: 20100617

REACTIONS (8)
  - Jaundice neonatal [Unknown]
  - Talipes [Unknown]
  - Attention deficit/hyperactivity disorder [Unknown]
  - Autism spectrum disorder [Unknown]
  - Congenital flat feet [Unknown]
  - Foetal exposure during pregnancy [Unknown]
  - Asperger^s disorder [Unknown]
  - Enuresis [Unknown]

NARRATIVE: CASE EVENT DATE: 20030506
